FAERS Safety Report 5191367-8 (Version None)
Quarter: 2006Q4

REPORT INFORMATION
  Report Type: 
  Country: None (occurrence: None)
  Receive Date: 20061220
  Receipt Date: 20061220
  Transmission Date: 20070319
  Serious: Yes (Hospitalization)
  Sender: FDA-Public Use
  Company Number: None

PATIENT
  Sex: Male
  Weight: 82.6 kg

DRUGS (5)
  1. CISPLATIN [Suspect]
     Dosage: 155 MG
  2. TAXOL [Suspect]
     Dosage: 205 MG
  3. BENADRYL [Concomitant]
  4. LISINOPRIL [Concomitant]
  5. MECLIZINE [Concomitant]

REACTIONS (9)
  - ASPIRATION [None]
  - CONSTIPATION [None]
  - DYSPHAGIA [None]
  - HYPONATRAEMIA [None]
  - INAPPROPRIATE ANTIDIURETIC HORMONE SECRETION [None]
  - OROPHARYNGEAL CANCER RECURRENT [None]
  - PNEUMONIA [None]
  - PRODUCTIVE COUGH [None]
  - URINARY RETENTION [None]
